FAERS Safety Report 6095975-1 (Version None)
Quarter: 2009Q1

REPORT INFORMATION
  Report Type: 
  Country: None (occurrence: None)
  Receive Date: 20090227
  Receipt Date: 20080729
  Transmission Date: 20090719
  Serious: No
  Sender: FDA-Public Use
  Company Number: A0739905A

PATIENT
  Sex: Female

DRUGS (2)
  1. LAMICTAL [Suspect]
     Indication: BIPOLAR DISORDER
     Dosage: 2TAB PER DAY
     Route: 048
  2. LITHIUM [Concomitant]

REACTIONS (3)
  - DISCOMFORT [None]
  - DIZZINESS [None]
  - DYSGEUSIA [None]
